FAERS Safety Report 9431805 (Version 7)
Quarter: 2014Q1

REPORT INFORMATION
  Report Type: Spontaneous
  Country: US (occurrence: None)
  Receive Date: 20130726
  Receipt Date: 20140204
  Transmission Date: 20141002
  Serious: Yes (Hospitalization, Other)
  Sender: FDA-Public Use
  Company Number: 2013US002019

PATIENT
  Age: 80 Year
  Sex: Male
  Weight: 76 kg

DRUGS (12)
  1. PONATINIB [Suspect]
     Indication: CHRONIC MYELOID LEUKAEMIA
     Route: 048
     Dates: start: 20130702, end: 20130713
  2. AMLODIPINE (AMLODIPINE) [Concomitant]
  3. PRAVASTATIN (PRAVASTATIN) [Concomitant]
  4. COQ-10 (UBIDECARENONE) [Concomitant]
  5. MAGNESIUM OXIDE (MAGNESIUM OXIDE) [Concomitant]
  6. FISH OIL (FISH OIL) [Concomitant]
  7. BENADRYL (DIPHENHYDRAMINE HYDROCHLORIDE) [Concomitant]
  8. MIRALAX [Concomitant]
  9. TRIAMCINOLONE ACETATE (TRIAMCINOLONE ACETONIDE) [Concomitant]
  10. LASIX (FUROSEMIDE) [Concomitant]
  11. METHYLPREDNISONE (METHYPREDNISONE) [Concomitant]
  12. VITAMIN D3 (VITAMIN D3) [Concomitant]

REACTIONS (31)
  - Hyponatraemia [None]
  - Treatment noncompliance [None]
  - Rash [None]
  - Bone pain [None]
  - Blood pressure systolic increased [None]
  - Skin exfoliation [None]
  - Fluid overload [None]
  - Blood chloride decreased [None]
  - Blood calcium decreased [None]
  - Blood albumin decreased [None]
  - Diastolic dysfunction [None]
  - Haemoglobin decreased [None]
  - Haematocrit decreased [None]
  - Specific gravity urine decreased [None]
  - Pleural effusion [None]
  - Cholelithiasis [None]
  - Hypovolaemia [None]
  - Pulmonary arterial pressure increased [None]
  - Generalised oedema [None]
  - Vomiting [None]
  - Hypophagia [None]
  - Dehydration [None]
  - Mitral valve incompetence [None]
  - Aortic valve incompetence [None]
  - Tricuspid valve incompetence [None]
  - Fatigue [None]
  - Asthenia [None]
  - Nausea [None]
  - Chills [None]
  - Retching [None]
  - Pancreatitis acute [None]
